FAERS Safety Report 6318392-5 (Version None)
Quarter: 2009Q3

REPORT INFORMATION
  Report Type: 
  Country: None (occurrence: None)
  Receive Date: 20090821
  Receipt Date: 20090817
  Transmission Date: 20100115
  Serious: Yes (Hospitalization)
  Sender: FDA-Public Use
  Company Number: US-GENENTECH-288747

PATIENT
  Sex: Female
  Weight: 45 kg

DRUGS (1)
  1. RITUXAN [Suspect]
     Indication: WEGENER'S GRANULOMATOSIS
     Dosage: 375 MG/M2, X1
     Route: 042
     Dates: start: 20090815

REACTIONS (1)
  - RESPIRATORY DISTRESS [None]
